FAERS Safety Report 4888077-0 (Version None)
Quarter: 2006Q1

REPORT INFORMATION
  Report Type: 
  Country: None (occurrence: None)
  Receive Date: 20060123
  Receipt Date: 20051005
  Transmission Date: 20060701
  Serious: Yes (Other)
  Sender: FDA-Public Use
  Company Number: US-MERCK-0510USA04498

PATIENT
  Age: 54 Year
  Sex: Female
  Weight: 109 kg

DRUGS (15)
  1. VIOXX [Suspect]
     Indication: NECK PAIN
     Route: 048
     Dates: start: 20011101, end: 20041001
  2. VIOXX [Suspect]
     Indication: PAIN IN JAW
     Route: 048
     Dates: start: 20011101, end: 20041001
  3. HYDROCHLOROTHIAZIDE AND TRIAMTERENE [Concomitant]
     Route: 065
  4. CARTIA (DILTIAZEM HYDROCHLORIDE) [Concomitant]
     Route: 065
  5. FOLTX [Concomitant]
     Route: 048
  6. ALLOPURINOL [Concomitant]
     Route: 048
  7. TRAZODONE HYDROCHLORIDE [Concomitant]
     Route: 048
  8. FLONASE [Concomitant]
     Route: 065
  9. ASTELIN [Concomitant]
     Route: 065
  10. IPRATROPIUM BROMIDE [Concomitant]
     Route: 065
  11. ANTIMICROBIAL (UNSPECIFIED) [Concomitant]
     Route: 065
  12. HUMIBID [Concomitant]
     Route: 065
  13. PEPCID AC [Concomitant]
     Route: 065
  14. ADVAIR DISKUS 100/50 [Concomitant]
     Route: 065
  15. ALBUTEROL [Concomitant]
     Route: 065

REACTIONS (4)
  - AMAUROSIS FUGAX [None]
  - CARDIOVASCULAR DISORDER [None]
  - FOOT FRACTURE [None]
  - TRANSIENT ISCHAEMIC ATTACK [None]
